FAERS Safety Report 6300095-4 (Version None)
Quarter: 2009Q3

REPORT INFORMATION
  Report Type: 
  Country: None (occurrence: None)
  Receive Date: 20090803
  Receipt Date: 20090720
  Transmission Date: 20100115
  Serious: Yes (Disabling)
  Sender: FDA-Public Use
  Company Number: ADR8892009

PATIENT
  Sex: Female

DRUGS (13)
  1. ALENDRONIC ACID (MFR: UNKNOWN) [Suspect]
     Indication: OSTEOPOROSIS
     Dosage: 70MG ORAL
     Route: 048
     Dates: start: 20060201, end: 20090301
  2. AMITRIPTYLINE [Concomitant]
  3. CALCICHEW D3 [Concomitant]
  4. ENALAPRIL MALEATE [Concomitant]
  5. FUROSEMIDE [Concomitant]
  6. LEVOTHYROXINE [Concomitant]
  7. MORPHINE SULFATE [Concomitant]
  8. ORAMORPH SR [Concomitant]
  9. PARACETAMOL [Concomitant]
  10. PEPTAC [Concomitant]
  11. QUININE SULPHATE [Concomitant]
  12. SALBUTAMOL [Concomitant]
  13. TRAMADOL [Concomitant]

REACTIONS (2)
  - FEMUR FRACTURE [None]
  - STRESS FRACTURE [None]
